FAERS Safety Report 11468728 (Version 1)
Quarter: 2015Q3

REPORT INFORMATION
  Report Type: Spontaneous
  Country: DK (occurrence: DK)
  Receive Date: 20150908
  Receipt Date: 20150908
  Transmission Date: 20151125
  Serious: Yes (Other)
  Sender: FDA-Public Use
  Company Number: DK-GLAXOSMITHKLINE-DK2015127134

PATIENT
  Age: 43 Year
  Sex: Male

DRUGS (1)
  1. NICORETTE [Suspect]
     Active Substance: NICOTINE
     Indication: SMOKING CESSATION THERAPY
     Dosage: 2 MG, UNK
     Route: 048
     Dates: start: 200901

REACTIONS (8)
  - Drug dependence [Unknown]
  - Glossodynia [Unknown]
  - Glossitis [Unknown]
  - Tongue dry [Unknown]
  - Stomatitis [Unknown]
  - Incorrect drug administration duration [Unknown]
  - Overdose [Unknown]
  - Oral mucosal blistering [Unknown]
